FAERS Safety Report 10862586 (Version 1)
Quarter: 2015Q1

REPORT INFORMATION
  Report Type: Report from Study
  Country: US (occurrence: None)
  Receive Date: 20150219
  Receipt Date: 20150219
  Transmission Date: 20150721
  Serious: Yes (Other)
  Sender: FDA-Public Use
  Company Number: US2015GSK019288

PATIENT
  Age: 39 Year
  Sex: Female

DRUGS (2)
  1. ISENTRESS [Suspect]
     Active Substance: RALTEGRAVIR POTASSIUM
     Indication: HIV INFECTION
     Dosage: TOTAL DOSE OF 800 MG
     Route: 048
  2. ABACAVIR SULPHATE+LAMIVUDINE+ZIDOVUDINE [Suspect]
     Active Substance: ABACAVIR SULFATE\LAMIVUDINE\ZIDOVUDINE
     Indication: HIV INFECTION
     Dosage: TOTAL DAILY DOSE OF 1500 MG
     Route: 048

REACTIONS (2)
  - Abortion spontaneous [None]
  - Maternal exposure during pregnancy [None]

NARRATIVE: CASE EVENT DATE: 20140722
